FAERS Safety Report 21136764 (Version 2)
Quarter: 2022Q3

REPORT INFORMATION
  Report Type: Spontaneous
  Country: US (occurrence: US)
  Receive Date: 20220727
  Receipt Date: 20220913
  Transmission Date: 20221027
  Serious: Yes (Hospitalization, Other)
  Sender: FDA-Public Use
  Company Number: US-BRISTOL-MYERS SQUIBB COMPANY-2022-077041

PATIENT
  Age: 70 Year
  Sex: Male
  Weight: 106.5 kg

DRUGS (1)
  1. REVLIMID [Suspect]
     Active Substance: LENALIDOMIDE
     Indication: Product used for unknown indication
     Dosage: 28 DAY CYCLE
     Route: 065
     Dates: start: 20210520, end: 20220615

REACTIONS (1)
  - Colitis [Recovered/Resolved]
